FAERS Safety Report 8373818-0 (Version None)
Quarter: 2012Q2

REPORT INFORMATION
  Report Type: 
  Country: None (occurrence: None)
  Receive Date: 20120517
  Receipt Date: 20120502
  Transmission Date: 20120825
  Serious: Yes (Hospitalization, Disabling, Other)
  Sender: FDA-Public Use
  Company Number: 2011-309

PATIENT
  Age: 43 Year
  Sex: Male
  Weight: 81 kg

DRUGS (1)
  1. PRIALT [Suspect]
     Indication: NEURALGIA
     Dosage: 0.05 UG, ONCE/HOUR, INTRATHECAL ; 0.03 UG, ONCE.HOUR, INTRATHECAL
     Route: 037
     Dates: start: 20110601

REACTIONS (10)
  - HALLUCINATION [None]
  - BURNING SENSATION [None]
  - PERINEAL PAIN [None]
  - PERSECUTORY DELUSION [None]
  - ANXIETY [None]
  - OVERDOSE [None]
  - AGITATION [None]
  - DELIRIUM [None]
  - DYSURIA [None]
  - MANIA [None]
